FAERS Safety Report 14702233 (Version 1)
Quarter: 2018Q2

REPORT INFORMATION
  Report Type: Not Available
  Country: US (occurrence: US)
  Receive Date: 20180401
  Receipt Date: 20180401
  Transmission Date: 20180711
  Serious: No
  Sender: FDA-Public Use
  Company Number: US-NEUROCRINE BIOSCIENCES INC.-2018NBI00374

PATIENT
  Age: 70 Year
  Sex: Female

DRUGS (9)
  1. CLONAZEPAM. [Concomitant]
     Active Substance: CLONAZEPAM
  2. SIMVASTATIN. [Concomitant]
     Active Substance: SIMVASTATIN
  3. VITAMIN B12 [Concomitant]
     Active Substance: CYANOCOBALAMIN
  4. INGREZZA [Suspect]
     Active Substance: VALBENAZINE
     Indication: TARDIVE DYSKINESIA
     Route: 048
     Dates: start: 20180103, end: 20180120
  5. DEPAKOTE [Concomitant]
     Active Substance: DIVALPROEX SODIUM
  6. RISPERIDONE. [Concomitant]
     Active Substance: RISPERIDONE
  7. VITAMIN B6 [Concomitant]
     Active Substance: PYRIDOXINE HYDROCHLORIDE
  8. CARBIDOPA-LEVODOPA [Concomitant]
     Active Substance: CARBIDOPA\LEVODOPA
  9. MULTI-VITAMIN [Concomitant]
     Active Substance: .ALPHA.-TOCOPHEROL ACETATE, DL-\ASCORBIC ACID\CYANOCOBALAMIN\FLUORIDE ION\FOLIC ACID\NIACIN\PYRIDOXINE\RIBOFLAVIN\THIAMINE\VITAMIN A\VITAMIN D

REACTIONS (2)
  - Myalgia [Unknown]
  - Asthenia [Unknown]

NARRATIVE: CASE EVENT DATE: 20180110
